FAERS Safety Report 24029997 (Version 1)
Quarter: 2024Q2

REPORT INFORMATION
  Report Type: Spontaneous
  Country: BR (occurrence: None)
  Receive Date: 20240628
  Receipt Date: 20240628
  Transmission Date: 20240715
  Serious: Yes (Other)
  Sender: FDA-Public Use
  Company Number: 2024A145824

PATIENT
  Sex: Female

DRUGS (1)
  1. LYNPARZA [Suspect]
     Active Substance: OLAPARIB
     Indication: Ovarian cancer stage III
     Dosage: UNKNOWN
     Route: 048
     Dates: start: 202404

REACTIONS (3)
  - Malignant neoplasm progression [Unknown]
  - Weight decreased [Unknown]
  - Ascites [Unknown]
